FAERS Safety Report 5175258-4 (Version None)
Quarter: 2006Q4

REPORT INFORMATION
  Report Type: 
  Country: None (occurrence: None)
  Receive Date: 20061211
  Receipt Date: 20061211
  Transmission Date: 20070319
  Serious: No
  Sender: FDA-Public Use
  Company Number: None

PATIENT
  Sex: Female
  Weight: 63.5036 kg

DRUGS (2)
  1. HUMIRA [Suspect]
     Indication: PSORIASIS
     Dosage: HUMIRA 40 MG QOW SQ
     Route: 058
     Dates: start: 20041027, end: 20050427
  2. HUMIRA [Suspect]
     Indication: PSORIATIC ARTHROPATHY
     Dosage: HUMIRA 40 MG QOW SQ
     Route: 058
     Dates: start: 20041027, end: 20050427

REACTIONS (2)
  - DEMYELINATION [None]
  - PARAESTHESIA [None]
